FAERS Safety Report 9417499 (Version 1)
Quarter: 2013Q3

REPORT INFORMATION
  Report Type: Spontaneous
  Country: US (occurrence: US)
  Receive Date: 20130724
  Receipt Date: 20130724
  Transmission Date: 20140515
  Serious: No
  Sender: FDA-Public Use
  Company Number: US-BRISTOL-MYERS SQUIBB COMPANY-18696021

PATIENT
  Age: 64 Year
  Sex: Male
  Weight: 113.38 kg

DRUGS (1)
  1. ELIQUIS [Suspect]
     Indication: ATRIAL FIBRILLATION
     Dosage: 1DF= 2.5MG OR 5MG
     Dates: start: 201302

REACTIONS (1)
  - Drug dose omission [Unknown]
